FAERS Safety Report 5753916-8 (Version None)
Quarter: 2008Q2

REPORT INFORMATION
  Report Type: 
  Country: None (occurrence: None)
  Receive Date: 20080530
  Receipt Date: 20080520
  Transmission Date: 20081010
  Serious: Yes (Hospitalization, Other)
  Sender: FDA-Public Use
  Company Number: B0522801A

PATIENT
  Age: 84 Year
  Sex: Male

DRUGS (2)
  1. AUGMENTIN '125' [Suspect]
     Route: 048
  2. METHYLPREDNISOLONE [Suspect]
     Dosage: 32MG SINGLE DOSE
     Route: 065

REACTIONS (5)
  - ANAEMIA [None]
  - CELL DEATH [None]
  - CHOLESTASIS [None]
  - DIABETES MELLITUS [None]
  - HYPOALBUMINAEMIA [None]
